FAERS Safety Report 19274693 (Version 2)
Quarter: 2021Q3

REPORT INFORMATION
  Report Type: Spontaneous
  Country: US (occurrence: US)
  Receive Date: 20210519
  Receipt Date: 20210727
  Transmission Date: 20211014
  Serious: Yes (Other)
  Sender: FDA-Public Use
  Company Number: US-PROCTER_AND_GAMBLE-GS21000315

PATIENT
  Age: 64 Year
  Sex: Male
  Weight: 81.63 kg

DRUGS (3)
  1. HEAD AND SHOULDERS CLASSIC CLEAN DANDRUFF [Suspect]
     Active Substance: PYRITHIONE ZINC
     Dosage: QUARTER SIZE AMOUNT, 2 TIMES DAILY.
     Route: 061
     Dates: end: 20210429
  2. HEAD AND SHOULDERS CLASSIC CLEAN DANDRUFF [Suspect]
     Active Substance: PYRITHIONE ZINC
     Dosage: QUARTER SIZE AMOUNT, 2 TIMES DAILY.
     Route: 061
     Dates: end: 2020
  3. HEAD AND SHOULDERS CLASSIC CLEAN DANDRUFF [Suspect]
     Active Substance: PYRITHIONE ZINC
     Dosage: QUARTER SIZE AMOUNT, 2 TIMES DAILY.
     Route: 061
     Dates: end: 20210512

REACTIONS (4)
  - Oxygen saturation decreased [Unknown]
  - Hair texture abnormal [Unknown]
  - Dyspnoea [Not Recovered/Not Resolved]
  - Seborrhoea [Unknown]

NARRATIVE: CASE EVENT DATE: 2017
